FAERS Safety Report 23443676 (Version 2)
Quarter: 2024Q1

REPORT INFORMATION
  Report Type: Spontaneous
  Country: US (occurrence: US)
  Receive Date: 20240125
  Receipt Date: 20240308
  Transmission Date: 20240410
  Serious: No
  Sender: FDA-Public Use
  Company Number: US-BIOGEN-2024BI01247190

PATIENT
  Sex: Female

DRUGS (27)
  1. PLEGRIDY [Suspect]
     Active Substance: PEGINTERFERON BETA-1A
     Indication: Multiple sclerosis
     Route: 050
  2. IRON [Concomitant]
     Active Substance: IRON
     Route: 050
  3. ACETAZOLAMIDE [Concomitant]
     Active Substance: ACETAZOLAMIDE
     Route: 050
  4. BACTRIM [Concomitant]
     Active Substance: SULFAMETHOXAZOLE\TRIMETHOPRIM
     Route: 050
  5. ZOFRAN [Concomitant]
     Active Substance: ONDANSETRON HYDROCHLORIDE
     Route: 050
  6. PANTOPRAZOLE [Concomitant]
     Active Substance: PANTOPRAZOLE
     Route: 050
  7. DIFLUCAN [Concomitant]
     Active Substance: FLUCONAZOLE
     Route: 050
  8. BIOTIN [Concomitant]
     Active Substance: BIOTIN
     Route: 050
  9. FOLIC ACID [Concomitant]
     Active Substance: FOLIC ACID
     Route: 050
  10. VITAMIN D3 [Concomitant]
     Active Substance: CHOLECALCIFEROL
     Route: 050
  11. VITAMIN B12 [Concomitant]
     Active Substance: CYANOCOBALAMIN
     Route: 050
  12. SODIUM [Concomitant]
     Active Substance: SODIUM
     Route: 050
  13. DOCQLACE [Concomitant]
     Active Substance: DOCUSATE SODIUM
     Route: 050
  14. BENADRYL ALLERGY [Concomitant]
     Active Substance: DIPHENHYDRAMINE HYDROCHLORIDE
     Route: 050
  15. ATORVASTATIN CALCIUM [Concomitant]
     Active Substance: ATORVASTATIN CALCIUM
     Route: 050
  16. FENOFIBRATE [Concomitant]
     Active Substance: FENOFIBRATE
     Route: 050
  17. SYNTHROID [Concomitant]
     Active Substance: LEVOTHYROXINE SODIUM
     Route: 050
  18. METHYLPREDNISOLONE [Concomitant]
     Active Substance: METHYLPREDNISOLONE
     Route: 050
  19. DALFAMPRIDINE [Concomitant]
     Active Substance: DALFAMPRIDINE
     Dosage: ER
     Route: 050
  20. POTASSIUM [Concomitant]
     Active Substance: POTASSIUM
     Route: 050
  21. BACLOFEN [Concomitant]
     Active Substance: BACLOFEN
     Route: 050
  22. TYLENOL [Concomitant]
     Active Substance: ACETAMINOPHEN
     Route: 050
  23. MODAFINIL [Concomitant]
     Active Substance: MODAFINIL
     Route: 050
  24. POTASSIUM CHLORIDE [Concomitant]
     Active Substance: POTASSIUM CHLORIDE
     Route: 050
  25. GABAPENTIN [Concomitant]
     Active Substance: GABAPENTIN
     Route: 050
  26. CALCIUM\CHOLECALCIFEROL [Concomitant]
     Active Substance: CALCIUM\CHOLECALCIFEROL
     Route: 050
  27. VERAPAMIL HCL [Concomitant]
     Active Substance: VERAPAMIL HYDROCHLORIDE
     Route: 050

REACTIONS (2)
  - Memory impairment [Unknown]
  - Injection site erythema [Unknown]
